FAERS Safety Report 5797032-8 (Version None)
Quarter: 2008Q3

REPORT INFORMATION
  Report Type: 
  Country: None (occurrence: None)
  Receive Date: 20080701
  Receipt Date: 20080624
  Transmission Date: 20090109
  Serious: Yes (Life-Threatening, Hospitalization)
  Sender: FDA-Public Use
  Company Number: DE-ELI_LILLY_AND_COMPANY-DE200806005509

PATIENT
  Sex: Male

DRUGS (4)
  1. HUMALOG [Suspect]
     Indication: DIABETES MELLITUS
     Dosage: UNK, UNKNOWN
  2. ACE INHIBITORS AND DIURETICS [Concomitant]
     Dosage: UNK, UNKNOWN
  3. HORMONES NOS [Concomitant]
     Dosage: UNK, UNKNOWN
  4. ANTIARRHYTHMICS, CLASS I AND III [Concomitant]
     Indication: ARRHYTHMIA
     Dosage: UNK, UNKNOWN

REACTIONS (1)
  - CEREBROVASCULAR ACCIDENT [None]
